FAERS Safety Report 18664240 (Version 1)
Quarter: 2020Q4

REPORT INFORMATION
  Report Type: Other
  Country: CN (occurrence: CN)
  Receive Date: 20201225
  Receipt Date: 20201225
  Transmission Date: 20210114
  Serious: Yes (Death)
  Sender: FDA-Public Use
  Company Number: CN-ROCHE-1813166

PATIENT
  Age: 70 Year
  Sex: Female
  Weight: 65 kg

DRUGS (1)
  1. AVASTIN [Suspect]
     Active Substance: BEVACIZUMAB
     Indication: LUNG ADENOCARCINOMA
     Route: 041
     Dates: start: 20151107, end: 20201015

REACTIONS (7)
  - Noninfective gingivitis [Unknown]
  - General physical health deterioration [Unknown]
  - Mouth ulceration [Unknown]
  - Headache [Fatal]
  - Nasopharyngitis [Recovering/Resolving]
  - Gingival swelling [Unknown]
  - Gingival pain [Unknown]

NARRATIVE: CASE EVENT DATE: 20201104
